FAERS Safety Report 15390099 (Version 1)
Quarter: 2018Q3

REPORT INFORMATION
  Report Type: Spontaneous
  Country: US (occurrence: US)
  Receive Date: 20180907
  Receipt Date: 20180907
  Transmission Date: 20181010
  Serious: Yes (Life-Threatening)
  Sender: FDA-Public Use
  Company Number: None

PATIENT
  Age: 60 Year
  Sex: Male
  Weight: 128 kg

DRUGS (13)
  1. MAGNESIUM OXIDE. [Concomitant]
     Active Substance: MAGNESIUM OXIDE
     Dates: start: 20180826, end: 20180904
  2. SIMVASTATIN. [Concomitant]
     Active Substance: SIMVASTATIN
     Dates: start: 20180421
  3. TACROLIMUS. [Concomitant]
     Active Substance: TACROLIMUS
     Dates: start: 20180323
  4. CALCIUM CARBONATE. [Concomitant]
     Active Substance: CALCIUM CARBONATE
     Dates: start: 20180322
  5. DAPTOMYCIN. [Concomitant]
     Active Substance: DAPTOMYCIN
     Dates: start: 20180831
  6. GABAPENTIN. [Concomitant]
     Active Substance: GABAPENTIN
     Dates: start: 20180421, end: 20180907
  7. TAMSULOSIN [Concomitant]
     Active Substance: TAMSULOSIN
     Dates: start: 20180322, end: 20180907
  8. SITAGLIPTIN [Concomitant]
     Active Substance: SITAGLIPTIN
     Dates: start: 20180826, end: 20180904
  9. PATIROMER [Concomitant]
     Active Substance: PATIROMER
     Dates: start: 20180830, end: 20180904
  10. INSULIN LISPRO [Concomitant]
     Active Substance: INSULIN LISPRO
     Dates: start: 20180824
  11. PENTAMIDINE [Suspect]
     Active Substance: PENTAMIDINE
     Indication: ANTIFUNGAL PROPHYLAXIS
     Dosage: ?          OTHER FREQUENCY:EVERY 30 DAYS;?
     Route: 055
     Dates: start: 20180419, end: 20180904
  12. SODIUM BICARBONATE. [Concomitant]
     Active Substance: SODIUM BICARBONATE
     Dates: start: 20180829
  13. VANCOMYCIN [Concomitant]
     Active Substance: VANCOMYCIN
     Dates: start: 20180831, end: 20180906

REACTIONS (8)
  - Cardio-respiratory arrest [None]
  - Cyanosis [None]
  - Wheezing [None]
  - Product quality issue [None]
  - Dyspnoea [None]
  - Hypoxia [None]
  - Hypotension [None]
  - Bronchospasm [None]

NARRATIVE: CASE EVENT DATE: 20180904
